FAERS Safety Report 4527187-4 (Version None)
Quarter: 2004Q4

REPORT INFORMATION
  Report Type: 
  Country: None (occurrence: None)
  Receive Date: 20041214
  Receipt Date: 20041214
  Transmission Date: 20050328
  Serious: Yes (Life-Threatening, Disabling)
  Sender: FDA-Public Use
  Company Number: None

PATIENT
  Age: 59 Year
  Sex: Male
  Weight: 104.3273 kg

DRUGS (2)
  1. VIOXX [Suspect]
     Dosage: 25
  2. CELEBREX [Suspect]
     Dosage: 200

REACTIONS (1)
  - CEREBROVASCULAR ACCIDENT [None]
